FAERS Safety Report 24387088 (Version 1)
Quarter: 2024Q4

REPORT INFORMATION
  Report Type: Spontaneous
  Country: JP (occurrence: JP)
  Receive Date: 20241002
  Receipt Date: 20241002
  Transmission Date: 20250114
  Serious: Yes (Other)
  Sender: GILEAD
  Company Number: JP-GILEAD-2024-0688151

PATIENT
  Age: 10 Decade
  Sex: Female

DRUGS (2)
  1. VEKLURY [Suspect]
     Active Substance: REMDESIVIR
     Indication: Product used for unknown indication
     Dosage: UNK
     Route: 065
  2. ENSITRELVIR FUMARATE [Concomitant]
     Active Substance: ENSITRELVIR FUMARATE
     Route: 048

REACTIONS (2)
  - Nephrotic syndrome [Unknown]
  - Protein urine present [Recovering/Resolving]
